FAERS Safety Report 25155027 (Version 7)
Quarter: 2025Q4

REPORT INFORMATION
  Report Type: Report from Study
  Country: US (occurrence: US)
  Receive Date: 20250403
  Receipt Date: 20251222
  Transmission Date: 20260118
  Serious: Yes (Hospitalization, Other)
  Sender: PFIZER
  Company Number: US-PFIZER INC-202500031221

PATIENT
  Age: 40 Year
  Sex: Female
  Weight: 58.49 kg

DRUGS (6)
  1. TUKYSA [Suspect]
     Active Substance: TUCATINIB
     Indication: Breast cancer female
     Dosage: 300 MG, 2X/DAY
     Route: 048
     Dates: start: 20250201
  2. TUKYSA [Suspect]
     Active Substance: TUCATINIB
     Dosage: 300 MG, 2X/DAY
     Route: 048
  3. TUKYSA [Suspect]
     Active Substance: TUCATINIB
     Dosage: 300 MG, 2X/DAY
     Route: 048
  4. TUKYSA [Suspect]
     Active Substance: TUCATINIB
     Dosage: 300 MG, 2X/DAY
     Route: 048
  5. TUKYSA [Suspect]
     Active Substance: TUCATINIB
     Dosage: 150 MG, TWO TABS TWICE DAILY
  6. CAPECITABINE [Suspect]
     Active Substance: CAPECITABINE
     Dosage: UNK

REACTIONS (42)
  - Mental disorder [Recovering/Resolving]
  - Breast cancer female [Not Recovered/Not Resolved]
  - Malignant neoplasm progression [Not Recovered/Not Resolved]
  - Neuropathy peripheral [Not Recovered/Not Resolved]
  - Pneumonia [Unknown]
  - Product dose omission in error [Unknown]
  - Muscle spasms [Unknown]
  - Hand deformity [Unknown]
  - Swelling [Unknown]
  - Anxiety [Unknown]
  - Insomnia [Recovered/Resolved]
  - Food craving [Unknown]
  - Blister [Unknown]
  - Rash macular [Unknown]
  - Dry skin [Unknown]
  - Oral mucosal blistering [Recovering/Resolving]
  - Thyroid hormones increased [Unknown]
  - Diarrhoea [Unknown]
  - Abdominal distension [Unknown]
  - Nausea [Not Recovered/Not Resolved]
  - Vomiting [Unknown]
  - Musculoskeletal stiffness [Unknown]
  - Dizziness [Unknown]
  - Haemorrhoidal haemorrhage [Not Recovered/Not Resolved]
  - Haemorrhage [Not Recovered/Not Resolved]
  - Condition aggravated [Not Recovered/Not Resolved]
  - Dyschezia [Recovered/Resolved]
  - Rash [Unknown]
  - Headache [Unknown]
  - Faeces hard [Not Recovered/Not Resolved]
  - Urinary tract infection [Unknown]
  - Sensitive skin [Not Recovered/Not Resolved]
  - Asthenia [Not Recovered/Not Resolved]
  - Animal scratch [Recovering/Resolving]
  - Oral disorder [Recovering/Resolving]
  - Pharyngitis [Unknown]
  - Dysphagia [Unknown]
  - Pharyngeal swelling [Unknown]
  - Abnormal faeces [Unknown]
  - Gastrointestinal pain [Unknown]
  - Rash pruritic [Not Recovered/Not Resolved]
  - Scab [Not Recovered/Not Resolved]

NARRATIVE: CASE EVENT DATE: 20250101
